FAERS Safety Report 12417688 (Version 1)
Quarter: 2016Q2

REPORT INFORMATION
  Report Type: Report from Study
  Country: IN (occurrence: IN)
  Receive Date: 20160530
  Receipt Date: 20160530
  Transmission Date: 20160815
  Serious: Yes (Death)
  Sender: FDA-Public Use
  Company Number: PHHY2016IN073951

PATIENT
  Age: 65 Year
  Sex: Male

DRUGS (1)
  1. NEORAL [Suspect]
     Active Substance: CYCLOSPORINE
     Indication: RENAL TRANSPLANT
     Dosage: 75 MG, BID
     Route: 048
     Dates: start: 19990605

REACTIONS (1)
  - Death [Fatal]

NARRATIVE: CASE EVENT DATE: 20160517
